FAERS Safety Report 9405364 (Version 2)
Quarter: 2013Q3

REPORT INFORMATION
  Report Type: Spontaneous
  Country: JP (occurrence: JP)
  Receive Date: 20130717
  Receipt Date: 20130806
  Transmission Date: 20140515
  Serious: Yes (Hospitalization, Other)
  Sender: FDA-Public Use
  Company Number: JP-WATSON-2013-12146

PATIENT
  Age: 43 Year
  Sex: Male
  Weight: 64 kg

DRUGS (7)
  1. ISONIAZID (WATSON LABORATORIES) [Suspect]
     Indication: TUBERCULOSIS
     Dosage: 25 MG, UNK
     Route: 065
  2. ISONIAZID (WATSON LABORATORIES) [Suspect]
     Dosage: 300 MG, UNK
     Route: 065
  3. ALLOPURINOL (UNKNOWN) [Suspect]
     Indication: HYPERURICAEMIA
     Dosage: 5 MG, UNK
     Route: 048
  4. ALLOPURINOL (UNKNOWN) [Suspect]
     Dosage: 100 MG, UNK
     Route: 048
  5. RIFAMPICIN [Concomitant]
     Indication: TUBERCULOSIS
     Dosage: 600 MG, UNK
     Route: 065
  6. PYRAZINAMIDE [Concomitant]
     Indication: TUBERCULOSIS
     Dosage: 1500 MG, UNK
     Route: 065
  7. ETHAMBUTOL [Concomitant]
     Indication: TUBERCULOSIS
     Dosage: 875 MG, UNK
     Route: 065

REACTIONS (1)
  - Drug reaction with eosinophilia and systemic symptoms [Recovered/Resolved]
